FAERS Safety Report 7935825-9 (Version None)
Quarter: 2011Q4

REPORT INFORMATION
  Report Type: 
  Country: None (occurrence: None)
  Receive Date: 20111123
  Receipt Date: 20111117
  Transmission Date: 20120403
  Serious: Yes (Hospitalization)
  Sender: FDA-Public Use
  Company Number: US-JNJFOC-20111010618

PATIENT
  Sex: Male
  Weight: 52.3 kg

DRUGS (9)
  1. PREDNISONE TAB [Concomitant]
  2. ACETAMINOPHEN [Concomitant]
  3. INFLIXIMAB, RECOMBINANT [Suspect]
     Route: 042
     Dates: start: 20110101
  4. NEXIUM [Concomitant]
  5. HYDROCORTISONE [Concomitant]
  6. DIPHENHYDRAMINE HCL [Concomitant]
  7. INFLIXIMAB, RECOMBINANT [Suspect]
     Indication: INFLAMMATORY BOWEL DISEASE
     Route: 042
     Dates: start: 20110706
  8. RISPERDAL [Concomitant]
  9. MESALAMINE [Concomitant]

REACTIONS (1)
  - COLITIS ULCERATIVE [None]
